FAERS Safety Report 17857034 (Version 1)
Quarter: 2020Q2

REPORT INFORMATION
  Report Type: Report from Study
  Country: CO (occurrence: CO)
  Receive Date: 20200603
  Receipt Date: 20200603
  Transmission Date: 20200714
  Serious: Yes (Hospitalization)
  Sender: FDA-Public Use
  Company Number: NVSC2018CO003855

PATIENT
  Sex: Female

DRUGS (1)
  1. EXJADE [Suspect]
     Active Substance: DEFERASIROX
     Indication: SICKLE CELL ANAEMIA
     Dosage: 500 MG, QD (2 DF)
     Route: 065
     Dates: end: 20180531

REACTIONS (8)
  - Blood iron increased [Unknown]
  - Movement disorder [Unknown]
  - Serum ferritin increased [Unknown]
  - Liver iron concentration abnormal [Unknown]
  - Bone pain [Not Recovered/Not Resolved]
  - Spinal cord injury [Unknown]
  - Haemoglobin decreased [Unknown]
  - Sickle cell anaemia with crisis [Unknown]
